FAERS Safety Report 15884386 (Version 3)
Quarter: 2019Q1

REPORT INFORMATION
  Report Type: Spontaneous
  Country: US (occurrence: US)
  Receive Date: 20190129
  Receipt Date: 20190307
  Transmission Date: 20190417
  Serious: Yes (Other)
  Sender: FDA-Public Use
  Company Number: US-PFIZER INC-2019033119

PATIENT
  Sex: Female

DRUGS (3)
  1. DIFLUCAN [Suspect]
     Active Substance: FLUCONAZOLE
     Dosage: 1 ML, 1X/DAY [2 ML ONE NIGHT AND 1 ML NEXT NIGHT]
  2. DIFLUCAN [Suspect]
     Active Substance: FLUCONAZOLE
     Dosage: 2 ML, 1X/DAY [2 ML ONE NIGHT AND 1 ML NEXT NIGHT]
  3. MOTRIN [Suspect]
     Active Substance: IBUPROFEN
     Dosage: UNK

REACTIONS (3)
  - Anaphylactic reaction [Unknown]
  - Mouth swelling [Unknown]
  - Angioedema [Unknown]
